FAERS Safety Report 9672342 (Version 1)
Quarter: 2013Q4

REPORT INFORMATION
  Report Type: Spontaneous
  Country: GB (occurrence: None)
  Receive Date: 20131105
  Receipt Date: 20131105
  Transmission Date: 20140711
  Serious: Yes (Hospitalization)
  Sender: FDA-Public Use
  Company Number: 2013AP009323

PATIENT
  Age: 94 Year
  Sex: Male

DRUGS (13)
  1. ALENDRONIC ACID (ALENDRONIC ACID) [Suspect]
     Route: 048
  2. ATENOLOL (ATENOLOL) [Concomitant]
  3. BUMETANIDE (BUMETANIDE) [Concomitant]
  4. CALCCIUM CARBONATE (CALCIUM CARBONATE) [Concomitant]
  5. WARFARIN (WARFARIN) [Suspect]
     Route: 048
     Dates: end: 20131007
  6. CO-COMADOL (PANADEINE CO) [Concomitant]
  7. FERROUS FUMARATE (FERROUS FUMARATE) [Concomitant]
  8. GTN (GLYCERYL TRINITRATE) [Concomitant]
  9. LACTULOSE (LACTULOSE) [Concomitant]
  10. OMEPRAZOLE (OMEPRAZOLE) [Concomitant]
  11. RAMIPRIL (RAMPRIL) [Concomitant]
  12. SIMVASTATIN (SIMVASTATIN) [Concomitant]
  13. OMEPRAZOLE (OMEPRAZOLE) [Suspect]

REACTIONS (5)
  - Gastrointestinal haemorrhage [None]
  - Haematemesis [None]
  - Hiatus hernia [None]
  - Melaena [None]
  - Varices oesophageal [None]
